FAERS Safety Report 17019333 (Version 1)
Quarter: 2019Q4

REPORT INFORMATION
  Report Type: Spontaneous
  Country: US (occurrence: US)
  Receive Date: 20191112
  Receipt Date: 20191112
  Transmission Date: 20200122
  Serious: Yes (Other)
  Sender: FDA-Public Use
  Company Number: US-CIPLA LTD.-2019US07288

PATIENT

DRUGS (1)
  1. TESTOSTERONE. [Suspect]
     Active Substance: TESTOSTERONE
     Indication: INFERTILITY MALE
     Dosage: UNKNOWN DOSING
     Route: 065

REACTIONS (2)
  - Hyperoestrogenism [Unknown]
  - Condition aggravated [Unknown]
